FAERS Safety Report 9142222 (Version 1)
Quarter: 2013Q1

REPORT INFORMATION
  Report Type: Spontaneous
  Country: US (occurrence: US)
  Receive Date: 20130305
  Receipt Date: 20130305
  Transmission Date: 20140127
  Serious: No
  Sender: FDA-Public Use
  Company Number: US-AMGEN-USASP2013011171

PATIENT
  Age: 41 Year
  Sex: Male

DRUGS (1)
  1. ENBREL [Suspect]
     Indication: INFECTION
     Dosage: 50 MG, QWK
     Dates: start: 2004, end: 20130204

REACTIONS (1)
  - Otitis media [Not Recovered/Not Resolved]
